FAERS Safety Report 21728362 (Version 1)
Quarter: 2022Q4

REPORT INFORMATION
  Report Type: Spontaneous
  Country: US (occurrence: US)
  Receive Date: 20221214
  Receipt Date: 20221214
  Transmission Date: 20230112
  Serious: No
  Sender: FDA-Public Use
  Company Number: US-PFIZER INC-202201364384

PATIENT
  Age: 70 Year
  Sex: Female
  Weight: 52.1 kg

DRUGS (1)
  1. IBRANCE [Suspect]
     Active Substance: PALBOCICLIB
     Indication: Breast cancer
     Dosage: 100 MG, CYCLIC (100MG TABLETS ONCE A DAY ON A 21 DAY CYCLE. 21 DAYS ON AND 7 DAYS OFF)
     Dates: start: 20221205

REACTIONS (2)
  - Musculoskeletal chest pain [Unknown]
  - Nausea [Unknown]

NARRATIVE: CASE EVENT DATE: 20221205
